FAERS Safety Report 11278794 (Version 1)
Quarter: 2015Q3

REPORT INFORMATION
  Report Type: Spontaneous
  Country: US (occurrence: US)
  Receive Date: 20150717
  Receipt Date: 20150717
  Transmission Date: 20151125
  Serious: No
  Sender: FDA-Public Use
  Company Number: US-AMGEN-USASP2015070040

PATIENT
  Age: 63 Year
  Sex: Female

DRUGS (1)
  1. ENBREL [Suspect]
     Active Substance: ETANERCEPT
     Indication: PRODUCT USED FOR UNKNOWN INDICATION
     Dosage: UNK
     Route: 065

REACTIONS (7)
  - Injection site pruritus [Unknown]
  - Injection site bruising [Unknown]
  - Injection site injury [Unknown]
  - Injection site pain [Unknown]
  - Blood pressure increased [Unknown]
  - Injection site swelling [Unknown]
  - Injection site haemorrhage [Unknown]
